FAERS Safety Report 7744431-0 (Version None)
Quarter: 2011Q3

REPORT INFORMATION
  Report Type: 
  Country: None (occurrence: None)
  Receive Date: 20110908
  Receipt Date: 20110826
  Transmission Date: 20111222
  Serious: Yes (Death)
  Sender: FDA-Public Use
  Company Number: 2011-352

PATIENT
  Age: 47 Year
  Sex: Male

DRUGS (14)
  1. PROAIR HFA (SALBUTAMOL SULFATE) [Concomitant]
  2. COGENTIN [Concomitant]
  3. MILK OF MAGNESIA TAB [Concomitant]
  4. KLONOPIN [Concomitant]
  5. DITROPAN XL [Concomitant]
  6. ATIVAN [Concomitant]
  7. AMBIEN [Concomitant]
  8. FAZACLO ODT [Suspect]
     Dosage: 400 MG, QD, ORAL
     Route: 048
     Dates: start: 20100525, end: 20110711
  9. LOTENSIN [Concomitant]
  10. ATROVENT HFA (IPRATROPIUM BROMIDE) [Concomitant]
  11. DEPAKOTE [Concomitant]
  12. ZYPREXA [Concomitant]
  13. DOCUSATE SODIUM (DOCUSATE SODIUM) [Concomitant]
  14. MYLANTA /00036701/ (ALUMINIUM HYDROXIDE GEL, DRIED, MAGNESIUM HYDROXID [Concomitant]

REACTIONS (1)
  - DEATH [None]
